FAERS Safety Report 8094605-7 (Version None)
Quarter: 2011Q4

REPORT INFORMATION
  Report Type: 
  Country: None (occurrence: None)
  Receive Date: 20111222
  Receipt Date: 20110928
  Transmission Date: 20120403
  Serious: Yes (Hospitalization)
  Sender: FDA-Public Use
  Company Number: UTC-010597

PATIENT
  Age: 56 Year
  Sex: Female
  Weight: 53.6 kg

DRUGS (6)
  1. REVATIO (SILDENAFIL CITRATE) (UNKNOWN) [Concomitant]
  2. DIURETICS (DIURETICS) (UNKNOWN) [Concomitant]
  3. AMLODIPINE [Concomitant]
  4. TYVASO [Suspect]
     Indication: PULMONARY ARTERIAL HYPERTENSION
     Dosage: 216 MCG  (54 MCG, 4 IN 1 D), INHALATION
     Route: 055
     Dates: start: 20110713
  5. DIURETICS (DIURETICS) (UNKNOWN) [Concomitant]
  6. DIGOXIN [Concomitant]

REACTIONS (2)
  - CATHETER PLACEMENT [None]
  - PULMONARY HYPERTENSION [None]
